FAERS Safety Report 25681100 (Version 1)
Quarter: 2025Q3

REPORT INFORMATION
  Report Type: Spontaneous
  Country: US (occurrence: None)
  Receive Date: 20250813
  Receipt Date: 20250813
  Transmission Date: 20251021
  Serious: Yes (Other)
  Sender: FDA-CTU
  Company Number: None

PATIENT
  Sex: Female

DRUGS (1)
  1. TALTZ [Suspect]
     Active Substance: IXEKIZUMAB
     Indication: Psoriasis
     Route: 058
     Dates: end: 20250715

REACTIONS (3)
  - Constipation [None]
  - Rectal haemorrhage [None]
  - Colitis ulcerative [None]

NARRATIVE: CASE EVENT DATE: 20250715
